FAERS Safety Report 22223130 (Version 1)
Quarter: 2023Q2

REPORT INFORMATION
  Report Type: Spontaneous
  Country: CN (occurrence: CN)
  Receive Date: 20230418
  Receipt Date: 20230418
  Transmission Date: 20230722
  Serious: Yes (Hospitalization, Other)
  Sender: FDA-Public Use
  Company Number: CN-PFIZER INC-PV202300068329

PATIENT
  Age: 60 Year
  Sex: Male

DRUGS (1)
  1. METHYLPREDNISOLONE [Suspect]
     Active Substance: METHYLPREDNISOLONE
     Indication: Nephrotic syndrome
     Dosage: 32 MG, 1X/DAY
     Route: 048

REACTIONS (2)
  - Pneumocystis jirovecii pneumonia [Unknown]
  - Epstein-Barr virus infection [Unknown]
